FAERS Safety Report 7902107-0 (Version None)
Quarter: 2011Q4

REPORT INFORMATION
  Report Type: 
  Country: None (occurrence: None)
  Receive Date: 20111108
  Receipt Date: 20111027
  Transmission Date: 20120403
  Serious: Yes (Hospitalization)
  Sender: FDA-Public Use
  Company Number: US-BAYER-2011-032910

PATIENT
  Age: 25 Year
  Sex: Female
  Weight: 63.492 kg

DRUGS (6)
  1. OMEPRAZOLE [Concomitant]
  2. LORATADINE [Concomitant]
  3. ALBUTEROL [Concomitant]
  4. YASMIN [Suspect]
     Indication: PREMENSTRUAL SYNDROME
     Dosage: UNK
     Dates: start: 20030101, end: 20090101
  5. IBUPROFEN [Concomitant]
  6. ZYRTEC [Concomitant]

REACTIONS (4)
  - CHOLECYSTITIS [None]
  - HEPATIC NEOPLASM [None]
  - GALLBLADDER DISORDER [None]
  - PAIN [None]
